FAERS Safety Report 5403518-8 (Version None)
Quarter: 2007Q3

REPORT INFORMATION
  Report Type: 
  Country: None (occurrence: None)
  Receive Date: 20070730
  Receipt Date: 20070716
  Transmission Date: 20080115
  Serious: Yes (Hospitalization)
  Sender: FDA-Public Use
  Company Number: 2007BI004944

PATIENT
  Sex: Female
  Weight: 59.5 kg

DRUGS (11)
  1. AVONEX [Suspect]
     Indication: MULTIPLE SCLEROSIS
     Dosage: 30 UG;QW;IM
     Route: 030
     Dates: start: 20050301
  2. BACLOFEN [Concomitant]
  3. TEGRETOL [Concomitant]
  4. RANITIDINE [Concomitant]
  5. ZOLADEX [Concomitant]
  6. TIBOLONE [Concomitant]
  7. OMEGA 3 [Concomitant]
  8. BECONASE SPRAY [Concomitant]
  9. GLUCOSAMINE [Concomitant]
  10. MOVICOL [Concomitant]
  11. FERROUS SULFATE TAB [Concomitant]

REACTIONS (4)
  - DRUG DOSE OMISSION [None]
  - HAEMOGLOBIN DECREASED [None]
  - MULTIPLE SCLEROSIS RELAPSE [None]
  - OVARIAN CYST [None]
